FAERS Safety Report 12158233 (Version 3)
Quarter: 2020Q3

REPORT INFORMATION
  Report Type: Spontaneous
  Country: FR (occurrence: FR)
  Receive Date: 20160308
  Receipt Date: 20200709
  Transmission Date: 20201102
  Serious: Yes (Hospitalization)
  Sender: FDA-Public Use
  Company Number: FR-ELI_LILLY_AND_COMPANY-FR201602008389

PATIENT
  Age: 29 Year
  Sex: Female
  Weight: 100 kg

DRUGS (2)
  1. OGASTORO [Concomitant]
     Active Substance: LANSOPRAZOLE
     Indication: PRODUCT USED FOR UNKNOWN INDICATION
  2. ZYPREXA [Suspect]
     Active Substance: OLANZAPINE
     Indication: PRODUCT USED FOR UNKNOWN INDICATION
     Dosage: 15 MG, QD
     Route: 048
     Dates: start: 2013, end: 201602

REACTIONS (4)
  - Venous thrombosis limb [Recovered/Resolved]
  - Amino acid level decreased [Unknown]
  - Mesenteric vein thrombosis [Recovered/Resolved]
  - Hyperhomocysteinaemia [Unknown]

NARRATIVE: CASE EVENT DATE: 20160205
